FAERS Safety Report 24419765 (Version 2)
Quarter: 2024Q4

REPORT INFORMATION
  Report Type: Report from Study
  Country: US (occurrence: US)
  Receive Date: 20241010
  Receipt Date: 20241018
  Transmission Date: 20250115
  Serious: No
  Sender: ROCHE
  Company Number: US-ROCHE-3506172

PATIENT

DRUGS (2)
  1. ALTEPLASE [Suspect]
     Active Substance: ALTEPLASE
     Indication: Pulmonary embolism
     Route: 042
  2. TENECTEPLASE [Suspect]
     Active Substance: TENECTEPLASE
     Indication: Pulmonary embolism
     Dosage: 19.8 AND 20 MG
     Route: 042

REACTIONS (3)
  - Gastrointestinal haemorrhage [Unknown]
  - Skin laceration [Unknown]
  - Vascular access site haematoma [Unknown]
